FAERS Safety Report 9912494 (Version 1)
Quarter: 2014Q1

REPORT INFORMATION
  Report Type: Other
  Country: US (occurrence: US)
  Receive Date: 20140220
  Receipt Date: 20140220
  Transmission Date: 20141002
  Serious: Yes (Hospitalization)
  Sender: FDA-Public Use
  Company Number: US-BRISTOL-MYERS SQUIBB COMPANY-20220984

PATIENT
  Age: 74 Year
  Sex: Male

DRUGS (3)
  1. KENALOG-40 INJ [Suspect]
     Indication: ARTHRALGIA
     Dosage: ON BOTH SHOULDERS.
     Route: 014
  2. AMLODIPINE [Concomitant]
  3. NORTRIPTYLINE HCL [Concomitant]

REACTIONS (1)
  - Diabetic ketoacidosis [Unknown]
